FAERS Safety Report 10906954 (Version 1)
Quarter: 2015Q1

REPORT INFORMATION
  Report Type: Spontaneous
  Country: US (occurrence: None)
  Receive Date: 20150309
  Receipt Date: 20150309
  Transmission Date: 20150721
  Serious: Yes (Hospitalization)
  Sender: FDA-Public Use
  Company Number: None

PATIENT
  Age: 74 Year
  Sex: Male
  Weight: 105 kg

DRUGS (14)
  1. SOTALOL HCL, AF [Concomitant]
  2. FUROSEMIDE (LASIX) [Concomitant]
  3. VITAMIN D, C HOLECALCIFEROL [Concomitant]
  4. HYDROCODONE/ACETAMINOPHEN (NORCO) [Concomitant]
  5. LISINOPRIL (ZESTRIL) [Concomitant]
  6. SIMVASTATIN (ZOCOR) [Concomitant]
  7. METFORMIN (GLUCOPHAGE-XR) [Concomitant]
  8. OXYBUTYNIN (DITROPAN XL) [Concomitant]
  9. JANUVIA [Concomitant]
     Active Substance: SITAGLIPTIN PHOSPHATE
  10. NITROGLYCERIN (NITRODUR) [Concomitant]
  11. OMEGA-3 FATTY ACIDS (OMEGA 3 PO) [Concomitant]
  12. OMEPRAZOLE. [Concomitant]
     Active Substance: OMEPRAZOLE
  13. WARFARIN [Suspect]
     Active Substance: WARFARIN
     Indication: ATRIAL FIBRILLATION
     Dosage: 1 TABLET QD PO
     Route: 048
  14. GLIPIZIDE (GLUCOTROL) [Concomitant]

REACTIONS (1)
  - Haematuria [None]

NARRATIVE: CASE EVENT DATE: 20140502
